FAERS Safety Report 8994586 (Version 1)
Quarter: 2012Q4

REPORT INFORMATION
  Report Type: Spontaneous
  Country: US (occurrence: None)
  Receive Date: 20121221
  Receipt Date: 20121221
  Transmission Date: 20130627
  Serious: Yes (Hospitalization)
  Sender: FDA-Public Use
  Company Number: 1087097

PATIENT
  Age: 88 Year
  Sex: Male
  Weight: 90.72 kg

DRUGS (3)
  1. SOOTHANOL [Suspect]
     Indication: THERAPEUTIC SKIN CARE TOPICAL
     Dates: start: 20120913
  2. CARVEDILOL [Concomitant]
  3. AMIODARONE [Concomitant]

REACTIONS (7)
  - Loss of consciousness [None]
  - Road traffic accident [None]
  - Ligament sprain [None]
  - Laceration [None]
  - Contusion [None]
  - Excoriation [None]
  - Device malfunction [None]
